FAERS Safety Report 8195673-4 (Version None)
Quarter: 2012Q1

REPORT INFORMATION
  Report Type: 
  Country: None (occurrence: None)
  Receive Date: 20120308
  Receipt Date: 20120224
  Transmission Date: 20120608
  Serious: Yes (Death, Hospitalization)
  Sender: FDA-Public Use
  Company Number: HU-ELI_LILLY_AND_COMPANY-HU201202007260

PATIENT
  Age: 41 Year
  Sex: Female

DRUGS (1)
  1. OLANZAPINE [Suspect]
     Indication: SCHIZOPHRENIA, CATATONIC TYPE
     Dosage: UNK
     Route: 030
     Dates: start: 20120213

REACTIONS (1)
  - DEATH [None]
